FAERS Safety Report 8806688 (Version 1)
Quarter: 2012Q4

REPORT INFORMATION
  Report Type: Spontaneous
  Country: US (occurrence: None)
  Receive Date: 20120920
  Receipt Date: 20120920
  Transmission Date: 20130627
  Serious: Yes (Other)
  Sender: FDA-Public Use
  Company Number: None

PATIENT
  Sex: Male
  Weight: 95.26 kg

DRUGS (8)
  1. CLOPIDOGREL [Suspect]
     Indication: CORONARY ARTERY DISEASE
     Route: 048
     Dates: start: 201203, end: 201208
  2. CLOPIDOGREL [Suspect]
     Indication: STENT PLACEMENT
     Route: 048
     Dates: start: 201203, end: 201208
  3. CLOPIDOGREL [Suspect]
     Indication: POSTOPERATIVE CARE
     Route: 048
     Dates: start: 201203, end: 201208
  4. ASPIRIN [Concomitant]
  5. ATENOLOL [Concomitant]
  6. NIACIN [Concomitant]
  7. NITROSTAT [Concomitant]
  8. ZOCOR [Concomitant]

REACTIONS (2)
  - Nausea [None]
  - Abdominal pain [None]
